FAERS Safety Report 17880254 (Version 1)
Quarter: 2020Q2

REPORT INFORMATION
  Report Type: Spontaneous
  Country: US (occurrence: US)
  Receive Date: 20200610
  Receipt Date: 20200610
  Transmission Date: 20200714
  Serious: No
  Sender: FDA-Public Use
  Company Number: US-SPECGX-T201903822

PATIENT
  Age: 46 Year
  Sex: Female
  Weight: 79 kg

DRUGS (17)
  1. H.P. ACTHAR [Concomitant]
     Active Substance: CORTICOTROPIN
     Indication: SERUM SEROTONIN DECREASED
     Dosage: UNK
     Route: 065
  2. ADDERALL [Concomitant]
     Active Substance: AMPHETAMINE ASPARTATE\AMPHETAMINE SULFATE\DEXTROAMPHETAMINE SACCHARATE\DEXTROAMPHETAMINE SULFATE
     Indication: CRANIOCEREBRAL INJURY
     Dosage: UNK
     Route: 065
  3. LIDOCAINE. [Concomitant]
     Active Substance: LIDOCAINE
     Indication: SCIATICA
     Dosage: UNK
     Route: 065
  4. MORPHINE [Concomitant]
     Active Substance: MORPHINE
     Indication: FIBROMYALGIA
  5. EFFEXOR [Concomitant]
     Active Substance: VENLAFAXINE HYDROCHLORIDE
     Indication: SERUM SEROTONIN DECREASED
     Dosage: UNK
     Route: 065
  6. LIDOCAINE. [Concomitant]
     Active Substance: LIDOCAINE
     Indication: INTERVERTEBRAL DISC PROTRUSION
  7. HYDROCODONE/ACETAMINOPHEN [Suspect]
     Active Substance: ACETAMINOPHEN\HYDROCODONE
     Indication: INTERVERTEBRAL DISC PROTRUSION
  8. HYDROCODONE/ACETAMINOPHEN [Suspect]
     Active Substance: ACETAMINOPHEN\HYDROCODONE
     Indication: FIBROMYALGIA
     Dosage: 10/325 MG,UP TO 3-4 TABLETS DAILY
     Route: 048
     Dates: start: 20190503, end: 201905
  9. TESTOSTERONE. [Concomitant]
     Active Substance: TESTOSTERONE
     Indication: HYSTERECTOMY
     Dosage: UNK
     Route: 065
  10. EFFEXOR [Concomitant]
     Active Substance: VENLAFAXINE HYDROCHLORIDE
     Indication: ANALGESIC THERAPY
  11. ESTRADIOL. [Concomitant]
     Active Substance: ESTRADIOL
     Indication: HYSTERECTOMY
     Dosage: UNK
     Route: 065
  12. LIDOCAINE. [Concomitant]
     Active Substance: LIDOCAINE
     Indication: FIBROMYALGIA
  13. HYDROCODONE/ACETAMINOPHEN [Suspect]
     Active Substance: ACETAMINOPHEN\HYDROCODONE
     Indication: SACROILIITIS
  14. MORPHINE [Concomitant]
     Active Substance: MORPHINE
     Indication: INTERVERTEBRAL DISC PROTRUSION
     Dosage: UNK
     Route: 065
  15. MORPHINE [Concomitant]
     Active Substance: MORPHINE
     Indication: SCIATICA
  16. H.P. ACTHAR [Concomitant]
     Active Substance: CORTICOTROPIN
     Indication: ANALGESIC THERAPY
  17. VITAMIN D [Concomitant]
     Active Substance: VITAMIN D NOS
     Indication: PRODUCT USED FOR UNKNOWN INDICATION
     Dosage: SOMETIMES TOOK HIGH DOSE, UNK
     Route: 065

REACTIONS (3)
  - Drug ineffective [Unknown]
  - Insomnia [Recovering/Resolving]
  - Rash [Recovered/Resolved]

NARRATIVE: CASE EVENT DATE: 201905
